FAERS Safety Report 18570941 (Version 1)
Quarter: 2020Q4

REPORT INFORMATION
  Report Type: Spontaneous
  Country: US (occurrence: US)
  Receive Date: 20201202
  Receipt Date: 20201202
  Transmission Date: 20210114
  Serious: No
  Sender: FDA-Public Use
  Company Number: US-ROCHE-2709318

PATIENT
  Age: 26 Year
  Sex: Male
  Weight: 43.58 kg

DRUGS (2)
  1. EVRYSDI [Suspect]
     Active Substance: RISDIPLAM
     Indication: SPINAL MUSCULAR ATROPHY
     Dosage: STARTED RISDIPLAM 08/13
     Route: 065
  2. MIRALAX [Concomitant]
     Active Substance: POLYETHYLENE GLYCOL 3350

REACTIONS (6)
  - Nausea [Unknown]
  - Headache [Unknown]
  - Sunburn [Unknown]
  - Feeling hot [Unknown]
  - Diarrhoea [Unknown]
  - Agitation [Unknown]
